FAERS Safety Report 5632950-2 (Version None)
Quarter: 2008Q1

REPORT INFORMATION
  Report Type: 
  Country: None (occurrence: None)
  Receive Date: 20080221
  Receipt Date: 20080214
  Transmission Date: 20080703
  Serious: Yes (Disabling, Other)
  Sender: FDA-Public Use
  Company Number: PHFR2008GB00891

PATIENT
  Age: 59 Year
  Sex: Male
  Weight: 93 kg

DRUGS (3)
  1. VALSARTAN [Suspect]
     Indication: HYPERTENSION
     Dosage: 80 MG/DAY
     Route: 048
     Dates: start: 20071210, end: 20080118
  2. PRAVASTATIN [Concomitant]
     Indication: HYPERLIPIDAEMIA
     Dosage: 20 MG/DAY
     Route: 048
     Dates: start: 20071001
  3. RAMIPRIL [Concomitant]
     Indication: HYPERTENSION
     Dosage: 2.5 MG/DAY
     Route: 048
     Dates: start: 20071101, end: 20071214

REACTIONS (1)
  - TENDONITIS [None]
